FAERS Safety Report 17884792 (Version 1)
Quarter: 2020Q2

REPORT INFORMATION
  Report Type: Spontaneous
  Country: US (occurrence: US)
  Receive Date: 20200611
  Receipt Date: 20200611
  Transmission Date: 20200714
  Serious: Yes (Life-Threatening, Hospitalization, Other)
  Sender: FDA-Public Use
  Company Number: US-NOVOPROD-732589

PATIENT
  Age: 13 Year
  Sex: Male
  Weight: 72.6 kg

DRUGS (2)
  1. NORDITROPIN [Suspect]
     Active Substance: SOMATROPIN
     Indication: PRADER-WILLI SYNDROME
     Dosage: 0.24 MG/KG, QW (RECOMMENDED DOSE)
     Route: 065
  2. NORDITROPIN [Suspect]
     Active Substance: SOMATROPIN
     Dosage: 0.23MG/KG, QW (ADMINSTERED DOSE)
     Route: 005

REACTIONS (4)
  - Diabetic ketoacidosis [Unknown]
  - Type 2 diabetes mellitus [Not Recovered/Not Resolved]
  - Weight decreased [Unknown]
  - Underdose [Unknown]
